FAERS Safety Report 17292765 (Version 1)
Quarter: 2020Q1

REPORT INFORMATION
  Report Type: Spontaneous
  Country: PT (occurrence: PT)
  Receive Date: 20200121
  Receipt Date: 20200121
  Transmission Date: 20200409
  Serious: Yes (Other)
  Sender: FDA-Public Use
  Company Number: PT-BAYER-2020-005760

PATIENT
  Age: 18 Year
  Sex: Female
  Weight: 48 kg

DRUGS (1)
  1. ULTRAVIST [Suspect]
     Active Substance: IOPROMIDE
     Indication: COMPUTERISED TOMOGRAM KIDNEY
     Dosage: 56070MG PARA REALIZA??O DE EXAME
     Route: 042
     Dates: start: 20191218

REACTIONS (3)
  - Erythema [Recovered/Resolved]
  - Injection site erythema [Recovered/Resolved]
  - Contrast media reaction [Recovered/Resolved]

NARRATIVE: CASE EVENT DATE: 20191218
